FAERS Safety Report 25059201 (Version 2)
Quarter: 2025Q1

REPORT INFORMATION
  Report Type: Report from Study
  Country: PT (occurrence: PT)
  Receive Date: 20250310
  Receipt Date: 20250319
  Transmission Date: 20250409
  Serious: Yes (Other)
  Sender: JOHNSON AND JOHNSON
  Company Number: None

PATIENT
  Age: 37 Year
  Sex: Male
  Weight: 89 kg

DRUGS (2)
  1. RILPIVIRINE [Suspect]
     Active Substance: RILPIVIRINE
     Indication: HIV infection
     Dates: start: 20241216, end: 20241216
  2. CABOTEGRAVIR [Suspect]
     Active Substance: CABOTEGRAVIR
     Indication: HIV infection
     Dates: start: 20241216, end: 20241216

REACTIONS (8)
  - Erectile dysfunction [Recovered/Resolved]
  - Injection site erythema [Recovered/Resolved]
  - Injection site oedema [Recovered/Resolved]
  - Pain [Recovered/Resolved]
  - Injection site warmth [Recovered/Resolved]
  - Injection site pain [Recovered/Resolved]
  - Injection site discomfort [Recovered/Resolved]
  - Administration site induration [Recovered/Resolved]

NARRATIVE: CASE EVENT DATE: 20241216
